FAERS Safety Report 4916911-4 (Version None)
Quarter: 2006Q1

REPORT INFORMATION
  Report Type: 
  Country: None (occurrence: None)
  Receive Date: 20060220
  Receipt Date: 20060210
  Transmission Date: 20060701
  Serious: Yes (Death, Life-Threatening, Hospitalization, Other)
  Sender: FDA-Public Use
  Company Number: ES-ABBOTT-06P-144-0324618-00

PATIENT
  Age: 81 Year
  Sex: Female

DRUGS (2)
  1. HUMIRA [Suspect]
     Indication: RHEUMATOID ARTHRITIS
     Route: 058
     Dates: start: 20050101
  2. METHOTREXATE [Concomitant]
     Indication: RHEUMATOID ARTHRITIS
     Route: 048
     Dates: start: 20030101

REACTIONS (5)
  - ATRIAL FIBRILLATION [None]
  - CARDIAC FAILURE [None]
  - PNEUMONIA [None]
  - RENAL FAILURE [None]
  - STAPHYLOCOCCAL SEPSIS [None]
